FAERS Safety Report 16075326 (Version 1)
Quarter: 2019Q1

REPORT INFORMATION
  Report Type: Spontaneous
  Country: US (occurrence: US)
  Receive Date: 20190315
  Receipt Date: 20190315
  Transmission Date: 20190418
  Serious: No
  Sender: FDA-Public Use
  Company Number: US-TEVA-2019-US-1019535

PATIENT
  Age: 42 Year
  Sex: Female

DRUGS (1)
  1. CLONAZEPAM. [Suspect]
     Active Substance: CLONAZEPAM
     Route: 065

REACTIONS (3)
  - Hypersensitivity [Unknown]
  - Urticaria [Unknown]
  - Dyspnoea [Unknown]
